FAERS Safety Report 6123435-8 (Version None)
Quarter: 2009Q1

REPORT INFORMATION
  Report Type: 
  Country: None (occurrence: None)
  Receive Date: 20090318
  Receipt Date: 20090312
  Transmission Date: 20090719
  Serious: No
  Sender: FDA-Public Use
  Company Number: US-B.I. PHARMACEUTICALS,INC./RIDGEFIELD-2009-BP-03162BP

PATIENT
  Sex: Male

DRUGS (11)
  1. SPIRIVA [Suspect]
     Route: 055
     Dates: start: 20090201
  2. DILTIAZEM [Concomitant]
     Indication: CARDIAC DISORDER
  3. DIOVAN [Concomitant]
     Indication: CARDIAC DISORDER
  4. LIPITOR [Concomitant]
     Indication: CARDIAC DISORDER
  5. COUMADIN [Concomitant]
     Indication: CARDIAC DISORDER
  6. PULMICORT-100 [Concomitant]
     Indication: ASTHMA
  7. ATROVENT HFA [Concomitant]
     Route: 055
  8. SINGULAIR [Concomitant]
     Indication: ASTHMA
  9. ASTELIN [Concomitant]
     Indication: ASTHMA
  10. FLONASE [Concomitant]
     Indication: ASTHMA
  11. KLONOPIN [Concomitant]

REACTIONS (4)
  - ASTHMA [None]
  - FATIGUE [None]
  - GAIT DISTURBANCE [None]
  - HEADACHE [None]
